FAERS Safety Report 15987637 (Version 1)
Quarter: 2019Q1

REPORT INFORMATION
  Report Type: Spontaneous
  Country: FR (occurrence: FR)
  Receive Date: 20190220
  Receipt Date: 20190220
  Transmission Date: 20190418
  Serious: Yes (Other)
  Sender: FDA-Public Use
  Company Number: FR-PFIZER INC-2019070343

PATIENT
  Age: 79 Year
  Sex: Female

DRUGS (12)
  1. PREDNISONE. [Concomitant]
     Active Substance: PREDNISONE
     Dosage: UNK
     Route: 065
     Dates: start: 20180711, end: 20181017
  2. NIPENT [Suspect]
     Active Substance: PENTOSTATIN
     Indication: HAIRY CELL LEUKAEMIA
     Dosage: 2 MG/M2, UNK
     Route: 042
     Dates: start: 20180412, end: 20180816
  3. VINCRISTINE [VINCRISTINE SULFATE] [Concomitant]
     Dosage: UNK
     Route: 065
     Dates: start: 20180711, end: 20181017
  4. CYCLOPHOSPHAMIDE. [Concomitant]
     Active Substance: CYCLOPHOSPHAMIDE
     Dosage: UNK (NR)
     Route: 065
     Dates: start: 20180711, end: 20181017
  5. RITUXIMAB RECOMBINANT [Concomitant]
     Active Substance: RITUXIMAB
     Dosage: UNK
     Route: 065
     Dates: start: 20180711, end: 20181017
  6. SULFAMETHOXAZOLE [Concomitant]
     Active Substance: SULFAMETHOXAZOLE
     Dosage: UNK
     Route: 048
     Dates: end: 201807
  7. PENTACARINAT [Concomitant]
     Active Substance: PENTAMIDINE ISETHIONATE
     Dosage: UNK
     Route: 045
     Dates: start: 201807
  8. HYDROCHLOROTHIAZIDE. [Concomitant]
     Active Substance: HYDROCHLOROTHIAZIDE
     Dosage: UNK
     Route: 048
  9. FOSINOPRIL [Concomitant]
     Active Substance: FOSINOPRIL
     Dosage: UNK
     Route: 048
  10. ZELITREX [Concomitant]
     Active Substance: VALACYCLOVIR HYDROCHLORIDE
     Dosage: 1 DF, 1X/DAY
     Route: 048
  11. TRIMETHOPRIME [Concomitant]
     Active Substance: TRIMETHOPRIM
     Dosage: UNK
     Route: 048
     Dates: end: 201807
  12. DAFLON [DIOSMIN;HESPERIDIN] [Concomitant]
     Dosage: UNK (NR)
     Route: 048

REACTIONS (1)
  - Dermatitis bullous [Recovered/Resolved with Sequelae]

NARRATIVE: CASE EVENT DATE: 201808
